FAERS Safety Report 9879543 (Version 1)
Quarter: 2014Q1

REPORT INFORMATION
  Report Type: Spontaneous
  Country: US (occurrence: US)
  Receive Date: 20140206
  Receipt Date: 20140206
  Transmission Date: 20141002
  Serious: Yes (Other)
  Sender: FDA-Public Use
  Company Number: US-ELI_LILLY_AND_COMPANY-US201401011230

PATIENT
  Sex: Male

DRUGS (4)
  1. HUMALOG 25% LISPRO, 75% NPL [Suspect]
     Indication: PRODUCT USED FOR UNKNOWN INDICATION
     Route: 065
  2. HUMALOG 25% LISPRO, 75% NPL [Suspect]
     Route: 065
  3. HUMALOG 25% LISPRO, 75% NPL [Suspect]
     Route: 065
  4. HUMALOG 25% LISPRO, 75% NPL [Suspect]
     Dosage: UNK
     Route: 065

REACTIONS (2)
  - Dementia [Not Recovered/Not Resolved]
  - Medication error [Unknown]
